FAERS Safety Report 15355090 (Version 2)
Quarter: 2018Q4

REPORT INFORMATION
  Report Type: Spontaneous
  Country: US (occurrence: US)
  Receive Date: 20180906
  Receipt Date: 20181207
  Transmission Date: 20190204
  Serious: No
  Sender: FDA-Public Use
  Company Number: US-PFIZER INC-2018357971

PATIENT
  Age: 19 Year
  Sex: Male
  Weight: 104 kg

DRUGS (3)
  1. ADVIL PM [Suspect]
     Active Substance: DIPHENHYDRAMINE CITRATE\IBUPROFEN
     Indication: INSOMNIA
     Dosage: 400 MG, AS NEEDED (2 CAPLETS WHEN PATIENT GOT HOME FROM WORK AT BEDTIME, AS NEEDED)
     Route: 048
     Dates: start: 201808, end: 20180829
  2. FISH OIL [Concomitant]
     Active Substance: FISH OIL
     Indication: SUPPLEMENTATION THERAPY
     Dosage: 1 DF, DAILY (1 PILL A DAY)
     Route: 048
     Dates: start: 201801
  3. ASPIRIN (E.C.) [Concomitant]
     Active Substance: ASPIRIN
     Indication: PROPHYLAXIS
     Dosage: 10 MG, DAILY (1 PILL A DAY)
     Route: 048
     Dates: start: 201801

REACTIONS (2)
  - Drug effect incomplete [Recovered/Resolved]
  - Drug effect delayed [Unknown]

NARRATIVE: CASE EVENT DATE: 201808
